FAERS Safety Report 7739759-4 (Version None)
Quarter: 2011Q3

REPORT INFORMATION
  Report Type: 
  Country: None (occurrence: None)
  Receive Date: 20110909
  Receipt Date: 20110830
  Transmission Date: 20111222
  Serious: Yes (Hospitalization)
  Sender: FDA-Public Use
  Company Number: CA-JNJFOC-20110404476

PATIENT
  Sex: Female
  Weight: 75 kg

DRUGS (5)
  1. SOLU-CORTEF [Concomitant]
     Route: 065
  2. BENADRYL [Concomitant]
     Route: 065
  3. REMICADE [Suspect]
     Indication: DEAFNESS
     Route: 042
     Dates: start: 20070101
  4. LOMOTIL [Concomitant]
     Dosage: 2.5/0.025MG 1 TO 2 TABS ORAL 4 X/DAY AS NEEDED
  5. REMICADE [Suspect]
     Indication: COLITIS ULCERATIVE
     Route: 042
     Dates: start: 20070101

REACTIONS (1)
  - INTESTINAL RESECTION [None]
